FAERS Safety Report 7430873-X (Version None)
Quarter: 2011Q2

REPORT INFORMATION
  Report Type: 
  Country: None (occurrence: None)
  Receive Date: 20110421
  Receipt Date: 20110419
  Transmission Date: 20111010
  Serious: Yes (Hospitalization)
  Sender: FDA-Public Use
  Company Number: CA-BRISTOL-MYERS SQUIBB COMPANY-15636277

PATIENT
  Age: 63 Year
  Sex: Male

DRUGS (1)
  1. ABILIFY [Suspect]
     Indication: BIPOLAR DISORDER
     Dosage: FOR 6 MONTHS ON UNSPECIFIED DOSE; THEN DOSE INCREASED TO 20 MG DAILY
     Route: 048
     Dates: start: 20100915

REACTIONS (1)
  - DIABETES INSIPIDUS [None]
